FAERS Safety Report 5064848-5 (Version None)
Quarter: 2006Q3

REPORT INFORMATION
  Report Type: 
  Country: None (occurrence: None)
  Receive Date: 20060728
  Receipt Date: 20060517
  Transmission Date: 20061208
  Serious: Yes (Other)
  Sender: FDA-Public Use
  Company Number: PHEH2006US06597

PATIENT
  Age: 82 Year
  Sex: Male

DRUGS (2)
  1. GLEEVEC [Suspect]
     Indication: CHRONIC MYELOID LEUKAEMIA
     Dosage: 300 MG, QD
     Route: 048
     Dates: start: 20020701
  2. GLEEVEC [Suspect]
     Dosage: 300 MG, QD
     Route: 048

REACTIONS (10)
  - BIOPSY LUNG ABNORMAL [None]
  - COLON CANCER [None]
  - COLONOSCOPY [None]
  - HAEMATOCHEZIA [None]
  - LUNG ADENOCARCINOMA [None]
  - LUNG NEOPLASM SURGERY [None]
  - LYMPHADENOPATHY [None]
  - NON-HODGKIN'S LYMPHOMA [None]
  - PANCYTOPENIA [None]
  - THROMBOCYTOPENIA [None]
